FAERS Safety Report 19690893 (Version 2)
Quarter: 2021Q3

REPORT INFORMATION
  Report Type: Report from Study
  Country: JP (occurrence: JP)
  Receive Date: 20210812
  Receipt Date: 20210823
  Transmission Date: 20211014
  Serious: Yes (Hospitalization)
  Sender: FDA-Public Use
  Company Number: JP-EISAI MEDICAL RESEARCH-EC-2021-095971

PATIENT
  Age: 70 Year
  Sex: Female
  Weight: 54.5 kg

DRUGS (11)
  1. LENVATINIB [Suspect]
     Active Substance: LENVATINIB
     Route: 048
     Dates: start: 20210706, end: 20210706
  2. CINAL [Concomitant]
     Dates: start: 20191204
  3. LENVATINIB [Suspect]
     Active Substance: LENVATINIB
     Indication: COLORECTAL CANCER
     Route: 048
     Dates: start: 20210624, end: 20210702
  4. TAKECAB [Concomitant]
     Active Substance: VONOPRAZAN FUMARATE
     Dates: start: 20190828
  5. LENVATINIB [Suspect]
     Active Substance: LENVATINIB
     Route: 048
     Dates: start: 20210804
  6. PEMBROLIZUMAB. [Suspect]
     Active Substance: PEMBROLIZUMAB
     Indication: COLORECTAL CANCER
     Dosage: UP TO 18 CYCLES
     Route: 041
     Dates: start: 20210624, end: 20210624
  7. AZILVA [Concomitant]
     Active Substance: AZILSARTAN KAMEDOXOMIL
     Dates: start: 20200721, end: 20210705
  8. AMLODIPINE [Concomitant]
     Active Substance: AMLODIPINE BESYLATE
     Dates: start: 20201112
  9. URSODIOL. [Concomitant]
     Active Substance: URSODIOL
     Dates: start: 20210616, end: 20210623
  10. MYSER [DIFLUPREDNATE] [Concomitant]
     Dates: start: 20210705, end: 20210706
  11. DIFLORASONE DIACETATE. [Concomitant]
     Active Substance: DIFLORASONE DIACETATE
     Dates: start: 20210705, end: 20210705

REACTIONS (1)
  - Pyrexia [Recovered/Resolved]

NARRATIVE: CASE EVENT DATE: 20210706
